FAERS Safety Report 19744351 (Version 1)
Quarter: 2021Q3

REPORT INFORMATION
  Report Type: Spontaneous
  Country: US (occurrence: US)
  Receive Date: 20210821
  Receipt Date: 20210821
  Transmission Date: 20211014
  Serious: No
  Sender: FDA-Public Use
  Company Number: None

PATIENT
  Age: 71 Year
  Sex: Female
  Weight: 59.85 kg

DRUGS (4)
  1. LOSARTAN 25MG [Concomitant]
     Active Substance: LOSARTAN
  2. INDAPAMIDE 1.25MG [Concomitant]
  3. MIRALAX [Suspect]
     Active Substance: POLYETHYLENE GLYCOL 3350
     Indication: CONSTIPATION
     Dosage: ?          QUANTITY:1 CAPFUL;?
     Route: 048
     Dates: start: 20210821, end: 20210821
  4. CENTRUM ADULT MULTIVITAMIN [Concomitant]

REACTIONS (4)
  - Product tampering [None]
  - Paraesthesia oral [None]
  - Oral contusion [None]
  - Product taste abnormal [None]

NARRATIVE: CASE EVENT DATE: 20210821
